FAERS Safety Report 25217887 (Version 1)
Quarter: 2025Q2

REPORT INFORMATION
  Report Type: Spontaneous
  Country: AT (occurrence: AT)
  Receive Date: 20250421
  Receipt Date: 20250421
  Transmission Date: 20250716
  Serious: Yes (Other)
  Sender: BRISTOL-MYERS SQUIBB COMPANY
  Company Number: AT-BRISTOL-MYERS SQUIBB COMPANY-2025-057317

PATIENT
  Age: 46 Year
  Sex: Female

DRUGS (3)
  1. LUSPATERCEPT [Suspect]
     Active Substance: LUSPATERCEPT
     Indication: Myelodysplastic syndrome
     Dates: start: 20230803
  2. LUSPATERCEPT [Suspect]
     Active Substance: LUSPATERCEPT
     Dates: start: 20240522
  3. LUSPATERCEPT [Suspect]
     Active Substance: LUSPATERCEPT
     Dates: start: 20240718

REACTIONS (3)
  - Fatigue [Recovering/Resolving]
  - Dyspnoea [Unknown]
  - Leukopenia [Unknown]
